FAERS Safety Report 6805434-3 (Version None)
Quarter: 2010Q2

REPORT INFORMATION
  Report Type: 
  Country: None (occurrence: None)
  Receive Date: 20100628
  Receipt Date: 20080108
  Transmission Date: 20101027
  Serious: No
  Sender: FDA-Public Use
  Company Number: US-PFIZER INC-2007096565

PATIENT
  Sex: Female
  Weight: 81.363 kg

DRUGS (3)
  1. XALATAN [Suspect]
     Indication: GLAUCOMA
     Route: 047
     Dates: start: 20020101, end: 20071114
  2. OXAPROZIN [Concomitant]
     Indication: ARTHRITIS
  3. DARVOCET [Concomitant]
     Indication: ARTHRITIS

REACTIONS (2)
  - EYE IRRITATION [None]
  - EYE SWELLING [None]
